FAERS Safety Report 9669251 (Version 1)
Quarter: 2013Q4

REPORT INFORMATION
  Report Type: Spontaneous
  Country: JP (occurrence: JP)
  Receive Date: 20131105
  Receipt Date: 20131105
  Transmission Date: 20140711
  Serious: Yes (Other)
  Sender: FDA-Public Use
  Company Number: JP-ROCHE-1296250

PATIENT
  Age: 66 Year
  Sex: Male

DRUGS (13)
  1. AVASTIN [Suspect]
     Indication: COLON CANCER METASTATIC
     Route: 041
     Dates: start: 201011
  2. AVASTIN [Suspect]
     Indication: COLON CANCER METASTATIC
     Route: 041
  3. ELPLAT [Concomitant]
     Indication: COLON CANCER METASTATIC
     Route: 041
     Dates: start: 201011
  4. 5-FU [Concomitant]
     Indication: COLON CANCER METASTATIC
     Route: 040
     Dates: start: 201011
  5. 5-FU [Concomitant]
     Indication: COLON CANCER METASTATIC
     Route: 041
     Dates: start: 201011
  6. 5-FU [Concomitant]
     Indication: COLON CANCER METASTATIC
     Route: 040
  7. 5-FU [Concomitant]
     Indication: COLON CANCER METASTATIC
     Route: 041
  8. LEVOFOLINATE [Concomitant]
     Indication: COLON CANCER METASTATIC
     Route: 041
     Dates: start: 201011
  9. LEVOFOLINATE [Concomitant]
     Indication: COLON CANCER METASTATIC
     Route: 041
  10. IRINOTECAN HYDROCHLORIDE [Concomitant]
     Indication: COLON CANCER METASTATIC
     Route: 041
  11. IRINOTECAN HYDROCHLORIDE [Concomitant]
     Indication: COLON CANCER METASTATIC
     Route: 041
     Dates: start: 201212
  12. PANITUMUMAB [Concomitant]
     Route: 041
     Dates: start: 201212
  13. INSULIN [Concomitant]
     Indication: DIABETES MELLITUS
     Route: 065

REACTIONS (2)
  - Bone marrow failure [Unknown]
  - Hypomagnesaemia [Unknown]
